FAERS Safety Report 25966856 (Version 2)
Quarter: 2025Q4

REPORT INFORMATION
  Report Type: Spontaneous
  Country: EU (occurrence: EU)
  Receive Date: 20251028
  Receipt Date: 20251030
  Transmission Date: 20260117
  Serious: Yes (Other)
  Sender: AUROBINDO
  Company Number: EU-AUROBINDO-AUR-APL-2017-37195

PATIENT
  Age: 37 Year
  Sex: Female

DRUGS (5)
  1. PREGABALIN [Suspect]
     Active Substance: PREGABALIN
     Indication: Generalised anxiety disorder
     Dosage: 50 MILLIGRAM, ONCE A DAY
     Route: 065
  2. PREGABALIN [Suspect]
     Active Substance: PREGABALIN
     Indication: Diabetic neuropathy
     Dosage: 400 MILLIGRAM, ONCE A DAY
     Route: 065
  3. LORAZEPAM [Concomitant]
     Active Substance: LORAZEPAM
     Indication: Product used for unknown indication
     Dosage: UNK
     Route: 065
  4. ESOMEPRAZOLE [Concomitant]
     Active Substance: ESOMEPRAZOLE
     Indication: Product used for unknown indication
     Dosage: UNK
     Route: 065
  5. LEVOTHYROXINE SODIUM [Concomitant]
     Active Substance: LEVOTHYROXINE SODIUM
     Indication: Product used for unknown indication
     Dosage: UNK
     Route: 065

REACTIONS (13)
  - Vision blurred [Not Recovered/Not Resolved]
  - Colour blindness [Not Recovered/Not Resolved]
  - Reading disorder [Not Recovered/Not Resolved]
  - Tunnel vision [Recovered/Resolved]
  - Photophobia [Recovered/Resolved]
  - Chromatopsia [Recovered/Resolved]
  - Impaired driving ability [Unknown]
  - Loss of personal independence in daily activities [Unknown]
  - Face injury [Unknown]
  - Ocular discomfort [Unknown]
  - Visual impairment [Unknown]
  - Colour blindness acquired [Not Recovered/Not Resolved]
  - Migraine [Unknown]
